FAERS Safety Report 10518790 (Version 1)
Quarter: 2014Q4

REPORT INFORMATION
  Report Type: Spontaneous
  Country: US (occurrence: US)
  Receive Date: 20141015
  Receipt Date: 20141015
  Transmission Date: 20150528
  Serious: Yes (Other)
  Sender: FDA-Public Use
  Company Number: CHPA2014US013599

PATIENT
  Sex: Male

DRUGS (10)
  1. BENEFIBER [Suspect]
     Active Substance: STARCH, WHEAT
     Indication: BOWEL MOVEMENT IRREGULARITY
     Dosage: 1 HEAPING TSP, QD
     Route: 048
     Dates: start: 2011
  2. ELIQUIS [Suspect]
     Active Substance: APIXABAN
     Indication: ATRIAL FIBRILLATION
     Dosage: UNK, QD
  3. METOLAZONE. [Concomitant]
     Active Substance: METOLAZONE
     Indication: LOCAL SWELLING
     Dosage: 5 MG, BID
  4. BENEFIBER [Suspect]
     Active Substance: STARCH, WHEAT
     Indication: FAECES HARD
     Dosage: 1 HEAPING TSP, QD
     Route: 048
     Dates: start: 201407, end: 2014
  5. ALLOPURINOL. [Concomitant]
     Active Substance: ALLOPURINOL
     Indication: GOUT
     Dosage: 100 MG, QD
     Dates: start: 2009
  6. ECOTRIN [Concomitant]
     Active Substance: ASPIRIN
     Indication: CARDIOVASCULAR EVENT PROPHYLAXIS
     Dosage: 81 MG, QD
     Route: 048
  7. ATORVASTATIN [Concomitant]
     Active Substance: ATORVASTATIN
     Indication: BLOOD CHOLESTEROL INCREASED
     Dosage: 10 MG, QD
     Dates: start: 2013
  8. BENEFIBER [Suspect]
     Active Substance: STARCH, WHEAT
     Indication: OFF LABEL USE
     Dosage: 1 HEAPING TSP, QD
     Route: 048
     Dates: start: 2014
  9. POTASSIUM [Concomitant]
     Active Substance: POTASSIUM
     Indication: BLOOD POTASSIUM DECREASED
     Dosage: 20 MEQ, UNK
  10. METOPROLOL [Concomitant]
     Active Substance: METOPROLOL
     Indication: HYPERTENSION
     Dosage: 100 MG, BID

REACTIONS (4)
  - Inappropriate schedule of drug administration [Unknown]
  - Atrial fibrillation [Recovered/Resolved]
  - Gastrointestinal haemorrhage [Recovered/Resolved]
  - Therapeutic response unexpected [Unknown]

NARRATIVE: CASE EVENT DATE: 2014
